FAERS Safety Report 5219189-X (Version None)
Quarter: 2007Q1

REPORT INFORMATION
  Report Type: 
  Country: None (occurrence: None)
  Receive Date: 20070124
  Receipt Date: 20070124
  Transmission Date: 20070707
  Serious: Yes (Life-Threatening, Hospitalization, Other)
  Sender: FDA-Public Use
  Company Number: None

PATIENT
  Age: 55 Year
  Sex: Male
  Weight: 90.5 kg

DRUGS (6)
  1. DAPTOMYCIN [Suspect]
     Indication: ENDOCARDITIS ENTEROCOCCAL
     Dosage: 500MG (= 5.5 MG/KG) IV Q24HR
     Route: 042
     Dates: start: 20061017, end: 20061025
  2. DAPTOMYCIN [Suspect]
     Indication: ENDOCARDITIS ENTEROCOCCAL
     Dosage: 500MG (= 5.5 MG/KG) IV Q24HR
     Route: 042
     Dates: end: 20061026
  3. GENTAMICIN SULFATE [Concomitant]
  4. CEFEPIME [Concomitant]
  5. VANCOMYCIN [Concomitant]
  6. IODAXANOL CONTRAST DYE [Concomitant]

REACTIONS (4)
  - DIALYSIS [None]
  - EOSINOPHIL COUNT INCREASED [None]
  - NEPHRITIS INTERSTITIAL [None]
  - RENAL FAILURE ACUTE [None]
